FAERS Safety Report 18899478 (Version 4)
Quarter: 2023Q2

REPORT INFORMATION
  Report Type: Spontaneous
  Country: US (occurrence: US)
  Receive Date: 20210216
  Receipt Date: 20230503
  Transmission Date: 20230722
  Serious: Yes (Other)
  Sender: FDA-Public Use
  Company Number: US-PFIZER INC-2021143578

PATIENT
  Age: 56 Year
  Sex: Female

DRUGS (3)
  1. IBRANCE [Suspect]
     Active Substance: PALBOCICLIB
     Dosage: 125 MG, CYCLIC
     Dates: start: 20180801
  2. IBRANCE [Suspect]
     Active Substance: PALBOCICLIB
     Dosage: 125 MG, CYCLIC
     Dates: start: 20210120
  3. IBRANCE [Suspect]
     Active Substance: PALBOCICLIB
     Dosage: 100 MG

REACTIONS (5)
  - Neuropathy peripheral [Recovered/Resolved]
  - Neutropenia [Unknown]
  - Alopecia [Unknown]
  - Fatigue [Unknown]
  - Infection [Unknown]

NARRATIVE: CASE EVENT DATE: 20210101
